FAERS Safety Report 6469980-7 (Version None)
Quarter: 2009Q4

REPORT INFORMATION
  Report Type: 
  Country: None (occurrence: None)
  Receive Date: 20091203
  Receipt Date: 20071228
  Transmission Date: 20100525
  Serious: Yes (Hospitalization)
  Sender: FDA-Public Use
  Company Number: US-ELI_LILLY_AND_COMPANY-US200712000873

PATIENT
  Sex: Male

DRUGS (11)
  1. BYETTA [Suspect]
     Indication: TYPE 2 DIABETES MELLITUS
     Dosage: 5 UG, 2/D
     Route: 058
     Dates: start: 20060101, end: 20060101
  2. BYETTA [Suspect]
     Dosage: 10 UG, 2/D
     Route: 058
     Dates: start: 20060101
  3. GLUCOPHAGE [Concomitant]
     Indication: DIABETES MELLITUS
     Dosage: 400 MG, DAILY (1/D)
  4. PENTOXIFYLLINE [Concomitant]
     Dosage: UNK, UNKNOWN
  5. DIOVAN [Concomitant]
     Dosage: UNK, UNKNOWN
  6. VYTORIN [Concomitant]
     Dosage: UNK, UNKNOWN
  7. AMITRIPTYLINE [Concomitant]
     Dosage: UNK, UNKNOWN
  8. ATENOLOL [Concomitant]
     Dosage: UNK, UNKNOWN
  9. PRILOSEC [Concomitant]
     Dosage: UNK, UNKNOWN
  10. TRICOR [Concomitant]
     Dosage: UNK, UNKNOWN
  11. ASPIRIN [Concomitant]
     Dosage: 325 MG, 2/D

REACTIONS (1)
  - INGUINAL HERNIA [None]
